FAERS Safety Report 8578716-5 (Version None)
Quarter: 2012Q3

REPORT INFORMATION
  Report Type: 
  Country: None (occurrence: None)
  Receive Date: 20120808
  Receipt Date: 20120731
  Transmission Date: 20120928
  Serious: Yes (Other)
  Sender: FDA-Public Use
  Company Number: US-ABBOTT-12P-163-0955330-00

PATIENT
  Sex: Female
  Weight: 72.186 kg

DRUGS (2)
  1. HUMIRA [Suspect]
     Dates: start: 20120625
  2. HUMIRA [Suspect]
     Indication: PSORIASIS
     Dates: start: 20080401

REACTIONS (8)
  - SURGERY [None]
  - SWELLING [None]
  - HYSTERECTOMY [None]
  - MUSCLE SPASMS [None]
  - NEURALGIA [None]
  - SPINAL CORD COMPRESSION [None]
  - PAIN [None]
  - UNDERDOSE [None]
